FAERS Safety Report 9131235 (Version 1)
Quarter: 2013Q1

REPORT INFORMATION
  Report Type: Spontaneous
  Country: NL (occurrence: NL)
  Receive Date: 20130301
  Receipt Date: 20130301
  Transmission Date: 20140127
  Serious: Yes (Hospitalization, Other)
  Sender: FDA-Public Use
  Company Number: NL-PFIZER INC-2013070937

PATIENT
  Age: 51 Year
  Sex: Male

DRUGS (3)
  1. IRINOTECAN HCL [Suspect]
     Indication: METASTASES TO LIVER
     Dosage: 300 MG/M2, CYCLIC (3 CYCLES)
  2. OXALIPLATIN [Suspect]
     Indication: METASTASES TO LIVER
     Dosage: 130 MG/M2, CYCLIC (6 CYCLES)
  3. CAPECITABINE [Concomitant]
     Indication: METASTASES TO LIVER
     Dosage: 1000 MG/M2, 2X/DAY

REACTIONS (1)
  - Nodular regenerative hyperplasia [Recovered/Resolved]
